FAERS Safety Report 23673646 (Version 1)
Quarter: 2024Q1

REPORT INFORMATION
  Report Type: Spontaneous
  Country: DE (occurrence: DE)
  Receive Date: 20240326
  Receipt Date: 20240326
  Transmission Date: 20240409
  Serious: Yes (Other)
  Sender: FDA-Public Use
  Company Number: DE-DSJP-DSE-2024-112779

PATIENT
  Sex: Male

DRUGS (13)
  1. EDOXABAN TOSYLATE [Suspect]
     Active Substance: EDOXABAN TOSYLATE
     Indication: Atrial fibrillation
     Dosage: 60 MG, QD (1 IN MORNING)
     Route: 048
     Dates: end: 202402
  2. ETHOSUXIMIDE [Concomitant]
     Active Substance: ETHOSUXIMIDE
     Indication: Product used for unknown indication
     Dosage: 1 DF, QD (IN MORNING)
     Route: 065
  3. POTASSIUM CHLORIDE [Concomitant]
     Active Substance: POTASSIUM CHLORIDE
     Indication: Product used for unknown indication
     Dosage: 1 DF, QD (IN MORNING)
     Route: 065
  4. METOPROLOL SUCCINATE [Concomitant]
     Active Substance: METOPROLOL SUCCINATE
     Indication: Product used for unknown indication
     Dosage: 1 DF, QD (IN MORNING)
     Route: 065
  5. PANTOPRAZOLE [Concomitant]
     Active Substance: PANTOPRAZOLE
     Indication: Product used for unknown indication
     Dosage: 1 DF, QD (IN MORNING 20-30 MINUTES BEFORE MEAL)
     Route: 065
  6. PRIMIDONE [Concomitant]
     Active Substance: PRIMIDONE
     Indication: Product used for unknown indication
     Dosage: 0.5 DF, TID (IN MORNING, NOON, AND IN EVENING)
     Route: 065
  7. SPIRONOLACTONE [Concomitant]
     Active Substance: SPIRONOLACTONE
     Indication: Product used for unknown indication
     Dosage: 1 DF, QD (IN MORNING)
     Route: 065
  8. LACOSAMIDE [Concomitant]
     Active Substance: LACOSAMIDE
     Indication: Product used for unknown indication
     Dosage: 1 DF, TID (MORNING, NOON AND EVENING)
     Route: 065
  9. LEVOTHYROXINE SODIUM [Concomitant]
     Active Substance: LEVOTHYROXINE SODIUM
     Indication: Product used for unknown indication
     Dosage: 1 DF, QD (25-30 MINS BEFORE MEAL)
     Route: 065
  10. CEFAVIT B COMPLETE [Concomitant]
     Indication: Product used for unknown indication
     Dosage: 1 DF, QD (IN NOON)
     Route: 065
  11. CHOLECALCIFEROL [Concomitant]
     Active Substance: CHOLECALCIFEROL
     Indication: Product used for unknown indication
     Dosage: 10 GTT, QD (IN MORNING)
     Route: 065
  12. TORSEMIDE [Concomitant]
     Active Substance: TORSEMIDE
     Indication: Product used for unknown indication
     Dosage: 3 DF, QD (2 DF IN MORNING AND 1 DF IN NOON)
     Route: 065
  13. NALOXONE HYDROCHLORIDE\TILIDINE HYDROCHLORIDE [Concomitant]
     Active Substance: NALOXONE HYDROCHLORIDE\TILIDINE HYDROCHLORIDE
     Indication: Product used for unknown indication
     Dosage: 30 GTT, QD (AT NIGNT) (AT DAYTIME UP TO 2X20 DROPS ADDITIONALLY IF NEEDED)
     Route: 065

REACTIONS (2)
  - Dermatitis allergic [Recovered/Resolved]
  - Superinfection [Unknown]
